FAERS Safety Report 5259459-2 (Version None)
Quarter: 2007Q1

REPORT INFORMATION
  Report Type: 
  Country: None (occurrence: None)
  Receive Date: 20070305
  Receipt Date: 20070222
  Transmission Date: 20070707
  Serious: Yes (Other)
  Sender: FDA-Public Use
  Company Number: 2007-00443

PATIENT
  Age: 71 Year
  Sex: Female

DRUGS (3)
  1. VELCADE [Suspect]
     Indication: MULTIPLE MYELOMA
     Dates: start: 20050726, end: 20051019
  2. ARANESP [Concomitant]
  3. HYDROCODONE (HYDROCODONE) [Concomitant]

REACTIONS (2)
  - DISEASE PROGRESSION [None]
  - NEUTROPENIA [None]
